FAERS Safety Report 16398157 (Version 1)
Quarter: 2019Q3

REPORT INFORMATION
  Report Type: Spontaneous
  Country: US (occurrence: US)
  Receive Date: 20190605
  Receipt Date: 20190605
  Transmission Date: 20191004
  Serious: Yes (Disabling)
  Sender: FDA-Public Use
  Company Number: None

PATIENT
  Age: 31 Year
  Sex: Female
  Weight: 60.75 kg

DRUGS (4)
  1. CIPROFLOXACIN. [Suspect]
     Active Substance: CIPROFLOXACIN
     Indication: SHIGELLA INFECTION
     Dosage: ?          QUANTITY:4 TABLET(S);?
     Route: 048
     Dates: start: 20190518, end: 20190520
  2. CIPROFLOXACIN. [Suspect]
     Active Substance: CIPROFLOXACIN
     Indication: DIARRHOEA INFECTIOUS
     Dosage: ?          QUANTITY:4 TABLET(S);?
     Route: 048
     Dates: start: 20190518, end: 20190520
  3. DAILY MULTIVITAMIN [Concomitant]
     Active Substance: VITAMINS
  4. DAILY PROBIOTIC PILL [Concomitant]

REACTIONS (5)
  - Tinnitus [None]
  - Migraine [None]
  - Headache [None]
  - Mood swings [None]
  - Depression [None]

NARRATIVE: CASE EVENT DATE: 20190527
